FAERS Safety Report 10313936 (Version 1)
Quarter: 2014Q3

REPORT INFORMATION
  Report Type: Spontaneous
  Country: NO (occurrence: NO)
  Receive Date: 20140718
  Receipt Date: 20140718
  Transmission Date: 20150326
  Serious: Yes (Hospitalization)
  Sender: FDA-Public Use
  Company Number: NO-ASTRAZENECA-2014SE50405

PATIENT
  Sex: Female

DRUGS (2)
  1. RISPERDAL [Concomitant]
     Active Substance: RISPERIDONE
     Indication: SCHIZOPHRENIA
     Dosage: 2 MG, 1+1 DOSES/DAILY, TOTAL OF 4 MG/DAY
     Route: 065
  2. SEROQUEL [Suspect]
     Active Substance: QUETIAPINE FUMARATE
     Indication: SCHIZOPHRENIA
     Dosage: 100 MG, 1+2 DOSES, TOTAL OF 300 MG/DAY
     Route: 048

REACTIONS (1)
  - Acute hepatic failure [Recovered/Resolved]
